FAERS Safety Report 17484728 (Version 2)
Quarter: 2020Q4

REPORT INFORMATION
  Report Type: Spontaneous
  Country: GR (occurrence: GR)
  Receive Date: 20200302
  Receipt Date: 20201211
  Transmission Date: 20210113
  Serious: Yes (Other)
  Sender: FDA-Public Use
  Company Number: GR-MYLANLABS-2020M1021951

PATIENT
  Age: 50 Year
  Sex: Male

DRUGS (6)
  1. IPRATROPIUM BROMIDE. [Suspect]
     Active Substance: IPRATROPIUM BROMIDE
     Indication: ASTHMA
     Dosage: UNK
     Route: 055
  2. BUDESONIDE W/FORMOTEROL [Suspect]
     Active Substance: BUDESONIDE\FORMOTEROL
     Indication: ASTHMA
     Dosage: UNK, 1320 MG OF BUDESONIDE
     Route: 055
  3. FORMOTEROL [Suspect]
     Active Substance: FORMOTEROL
     Indication: ASTHMA
     Dosage: UNK
     Route: 055
  4. MEPOLIZUMAB [Suspect]
     Active Substance: MEPOLIZUMAB
     Indication: ASTHMA
     Dosage: UNK
  5. BUDESONIDE. [Suspect]
     Active Substance: BUDESONIDE
     Indication: ASTHMA
     Dosage: 1320 MILLIGRAM
     Route: 055
  6. CICLESONIDE [Suspect]
     Active Substance: CICLESONIDE
     Indication: ASTHMA
     Dosage: 640 MILLIGRAM
     Route: 048

REACTIONS (2)
  - Cushing^s syndrome [Recovered/Resolved with Sequelae]
  - Asthma [Not Recovered/Not Resolved]
